FAERS Safety Report 9112902 (Version 1)
Quarter: 2013Q1

REPORT INFORMATION
  Report Type: Report from Study
  Country: FR (occurrence: FR)
  Receive Date: 20130211
  Receipt Date: 20130211
  Transmission Date: 20140127
  Serious: Yes (Other)
  Sender: FDA-Public Use
  Company Number: FR-ROCHE-1189461

PATIENT
  Age: 60 Year
  Sex: Female

DRUGS (19)
  1. TOCILIZUMAB [Suspect]
     Indication: RHEUMATOID ARTHRITIS
     Route: 041
     Dates: start: 20111020, end: 20120416
  2. CORTANCYL [Concomitant]
     Route: 065
     Dates: start: 20101020
  3. CORTANCYL [Concomitant]
     Route: 065
     Dates: start: 20101020
  4. TOPALGIC [Concomitant]
     Route: 065
  5. CACIT D3 [Concomitant]
     Route: 065
  6. FOSAVANCE [Concomitant]
     Dosage: 700 MG/5600
     Route: 065
  7. COVERSYL [Concomitant]
     Route: 065
  8. EUPRESSYL [Concomitant]
     Route: 065
  9. DIFFU K [Concomitant]
  10. INEXIUM [Concomitant]
     Route: 065
  11. FENOFIBRATE [Concomitant]
     Route: 065
  12. SULFARLEM [Concomitant]
     Route: 065
  13. ACTOS [Concomitant]
  14. ATENOLOL [Concomitant]
     Route: 065
  15. DIAMICRON [Concomitant]
     Route: 065
  16. STAGID [Concomitant]
     Route: 065
  17. FORLAX (FRANCE) [Concomitant]
     Route: 065
  18. CONTRAMAL LP [Concomitant]
     Route: 065
  19. ACUPAN [Concomitant]
     Route: 065

REACTIONS (3)
  - Diabetes mellitus inadequate control [Not Recovered/Not Resolved]
  - Arthralgia [Not Recovered/Not Resolved]
  - Hepatic enzyme increased [Not Recovered/Not Resolved]
